FAERS Safety Report 9790087 (Version 3)
Quarter: 2014Q2

REPORT INFORMATION
  Report Type: Report from Study
  Country: AT (occurrence: AT)
  Receive Date: 20131231
  Receipt Date: 20140417
  Transmission Date: 20141212
  Serious: Yes (Hospitalization, Other)
  Sender: FDA-Public Use
  Company Number: AT-ACTELION-A-CH2013-92833

PATIENT
  Age: 43 Year
  Sex: Female
  Weight: 45 kg

DRUGS (10)
  1. MACITENTAN [Suspect]
     Indication: PULMONARY ARTERIAL HYPERTENSION
     Dosage: 10 MG, QD
     Route: 048
     Dates: start: 20081224, end: 20131221
  2. FUROSEMID [Concomitant]
     Dosage: 20 MG, UNK
     Dates: start: 200811
  3. SPIROBENE [Concomitant]
     Dosage: 50 MG, UNK
     Dates: start: 200811
  4. PHENPROCOUMON [Concomitant]
     Dosage: 3 MG, UNK
     Dates: start: 200811
  5. PANTOPRAZOLE [Concomitant]
     Dosage: 40 MG, UNK
     Dates: start: 200811
  6. PROSTACYCLIN [Concomitant]
     Dosage: UNK
     Dates: start: 2009
  7. SILDENAFIL [Concomitant]
     Dosage: 40 MG, UNK
     Dates: start: 200811
  8. TARDYFERON [Concomitant]
  9. CETIRIZINE [Concomitant]
     Dosage: 10 MG, UNK
     Dates: start: 2009
  10. TREPROSTINIL [Concomitant]
     Dosage: UNK
     Route: 058
     Dates: start: 2008

REACTIONS (18)
  - Liver function test abnormal [Recovered/Resolved with Sequelae]
  - Right ventricular failure [Recovered/Resolved]
  - Condition aggravated [Unknown]
  - Pulmonary arterial hypertension [Unknown]
  - Hepatic congestion [Recovered/Resolved]
  - Hepatomegaly [Recovered/Resolved]
  - Hypotension [Recovered/Resolved]
  - Oedema peripheral [Recovered/Resolved]
  - Fatigue [Recovered/Resolved]
  - Dyspnoea [Recovered/Resolved]
  - Tachycardia [Recovered/Resolved]
  - Device infusion issue [Unknown]
  - N-terminal prohormone brain natriuretic peptide increased [Recovered/Resolved]
  - Gamma-glutamyltransferase increased [Recovered/Resolved with Sequelae]
  - Blood bilirubin increased [Recovered/Resolved with Sequelae]
  - Blood alkaline phosphatase increased [Recovered/Resolved with Sequelae]
  - Aspartate aminotransferase increased [Recovered/Resolved with Sequelae]
  - Alanine aminotransferase increased [Recovered/Resolved with Sequelae]
